FAERS Safety Report 19853203 (Version 2)
Quarter: 2023Q2

REPORT INFORMATION
  Report Type: Report from Study
  Country: US (occurrence: US)
  Receive Date: 20210919
  Receipt Date: 20230621
  Transmission Date: 20230722
  Serious: No
  Sender: FDA-Public Use
  Company Number: US-SA-SAC20210914001461

PATIENT
  Age: 53 Year
  Sex: Female

DRUGS (1)
  1. DUPILUMAB [Suspect]
     Active Substance: DUPILUMAB
     Dosage: 300 MG, OTHER
     Route: 058
     Dates: start: 202103

REACTIONS (2)
  - Flushing [Unknown]
  - Erythema [Unknown]

NARRATIVE: CASE EVENT DATE: 20210101
